FAERS Safety Report 8553112-5 (Version None)
Quarter: 2012Q3

REPORT INFORMATION
  Report Type: 
  Country: None (occurrence: None)
  Receive Date: 20120731
  Receipt Date: 20120719
  Transmission Date: 20120928
  Serious: Yes (Other)
  Sender: FDA-Public Use
  Company Number: MX-SANOFI-AVENTIS-2012SA051642

PATIENT
  Age: 81 Year
  Sex: Female

DRUGS (1)
  1. LANTUS [Suspect]
     Indication: TYPE 2 DIABETES MELLITUS
     Route: 058
     Dates: start: 20080101

REACTIONS (6)
  - HYPERGLYCAEMIA [None]
  - RASH [None]
  - HERPES ZOSTER [None]
  - LUNG DISORDER [None]
  - PRURITUS [None]
  - BURNING SENSATION [None]
